FAERS Safety Report 21805874 (Version 2)
Quarter: 2023Q1

REPORT INFORMATION
  Report Type: Other
  Country: CA (occurrence: None)
  Receive Date: 20230102
  Receipt Date: 20230216
  Transmission Date: 20230418
  Serious: Yes (Hospitalization)
  Sender: FDA-Public Use
  Company Number: CA-ROCHE-3254969

PATIENT
  Age: 41 Year
  Sex: Male

DRUGS (4)
  1. RITUXIMAB [Suspect]
     Active Substance: RITUXIMAB
     Indication: Acquired haemophilia
     Route: 065
  2. CYCLOPHOSPHAMIDE [Concomitant]
     Active Substance: CYCLOPHOSPHAMIDE
     Indication: Product used for unknown indication
     Route: 065
  3. PREDNISONE [Concomitant]
     Active Substance: PREDNISONE
     Indication: Product used for unknown indication
     Route: 065
  4. ANTIHEMOPHILIC FACTOR HUMAN [Concomitant]
     Active Substance: ANTIHEMOPHILIC FACTOR HUMAN
     Dosage: 90.0 UG/KG
     Route: 065

REACTIONS (7)
  - Off label use [Unknown]
  - Febrile neutropenia [Recovered/Resolved]
  - HCoV-OC43 infection [Recovered/Resolved]
  - Haematoma muscle [Recovered/Resolved]
  - Neutropenia [Recovered/Resolved]
  - Respiratory syncytial virus infection [Recovered/Resolved]
  - Scrotal cellulitis [Recovered/Resolved]
